FAERS Safety Report 10182575 (Version 1)
Quarter: 2014Q2

REPORT INFORMATION
  Report Type: Spontaneous
  Country: ES (occurrence: None)
  Receive Date: 20140516
  Receipt Date: 20140516
  Transmission Date: 20141212
  Serious: Yes (Other)
  Sender: FDA-Public Use
  Company Number: AUR-APL-2014-05573

PATIENT
  Age: 76 Year
  Sex: Male
  Weight: 74 kg

DRUGS (9)
  1. METFORMIN (METFORMIN) [Suspect]
     Indication: DIABETES MELLITUS
     Route: 048
     Dates: start: 20140506, end: 20140506
  2. ASTUDAL (AMLODIPINE BESILATE) [Concomitant]
  3. MINITRAL (GLYCERYL TRINITRATE) [Concomitant]
  4. ZARATOR (ATORVASTATIN ) [Concomitant]
  5. ADIRO (ACETYLSALICYLIC ACID) [Concomitant]
  6. PANTECTA (PANTOPRAZOLE SODIUM) [Concomitant]
  7. ACOVIL (RAMIPRIL) [Concomitant]
  8. LEXATIN (BROMAZEPAM) [Concomitant]
  9. VERNIES  (GLYCERYL TRINITRATE) [Concomitant]

REACTIONS (3)
  - Tremor [None]
  - Conjunctival haemorrhage [None]
  - Gastrointestinal disorder [None]
